FAERS Safety Report 18045030 (Version 1)
Quarter: 2020Q3

REPORT INFORMATION
  Report Type: Report from Study
  Country: BR (occurrence: BR)
  Receive Date: 20200720
  Receipt Date: 20200720
  Transmission Date: 20201103
  Serious: Yes (Other)
  Sender: FDA-Public Use
  Company Number: NVSC2020BR189175

PATIENT
  Sex: Female
  Weight: 100 kg

DRUGS (1)
  1. COSENTYX [Suspect]
     Active Substance: SECUKINUMAB
     Indication: PSORIATIC ARTHROPATHY
     Dosage: 2 DF, QMO (2 AMPOULES OF 150 MG)
     Route: 058

REACTIONS (7)
  - Headache [Recovering/Resolving]
  - Decreased appetite [Recovering/Resolving]
  - Retching [Recovering/Resolving]
  - Malaise [Recovering/Resolving]
  - Hypertension [Recovering/Resolving]
  - Dizziness [Recovered/Resolved]
  - Retching [Recovered/Resolved]
